FAERS Safety Report 9307567 (Version 1)
Quarter: 2013Q2

REPORT INFORMATION
  Report Type: Spontaneous
  Country: US (occurrence: US)
  Receive Date: 20130524
  Receipt Date: 20130524
  Transmission Date: 20140414
  Serious: No
  Sender: FDA-Public Use
  Company Number: US-009507513-1305USA013303

PATIENT
  Age: 61 Year
  Sex: Male
  Weight: 58.5 kg

DRUGS (4)
  1. PEG-INTRON [Suspect]
     Dosage: REDIPEN, 120 MCG/0.5ML, ONCE PER WEEK
     Route: 058
  2. REBETOL [Suspect]
     Dosage: 200 MG, UNK
     Route: 048
  3. SYNTHROID [Suspect]
     Dosage: 137 MICROGRAM, UNK
     Route: 048
  4. ATIVAN [Concomitant]

REACTIONS (4)
  - Amnesia [Unknown]
  - Confusional state [Unknown]
  - Headache [Unknown]
  - Pyrexia [Unknown]
